FAERS Safety Report 7688308-8 (Version None)
Quarter: 2011Q3

REPORT INFORMATION
  Report Type: 
  Country: None (occurrence: None)
  Receive Date: 20110817
  Receipt Date: 20110505
  Transmission Date: 20111222
  Serious: No
  Sender: FDA-Public Use
  Company Number: US-KINGPHARMUSA00001-K201000021

PATIENT
  Age: 47 Year
  Sex: Female
  Weight: 97.506 kg

DRUGS (6)
  1. LEVOXYL [Suspect]
     Dosage: 75 MCG, QD
     Route: 048
     Dates: start: 20100328
  2. THYROID TAB [Concomitant]
  3. CYTOMEL [Suspect]
     Dosage: 5 MCG, QOD
     Route: 048
     Dates: start: 20110301
  4. LEVOXYL [Suspect]
     Dosage: 50 MCG, QD
     Route: 048
     Dates: start: 20101201
  5. CYTOMEL [Suspect]
     Indication: TRI-IODOTHYRONINE DECREASED
     Dosage: 5 MCG, UNK
     Route: 048
  6. CYTOMEL [Suspect]
     Dosage: 6.25 MCG, QD
     Route: 048

REACTIONS (11)
  - WEIGHT INCREASED [None]
  - HYPERSENSITIVITY [None]
  - GASTROINTESTINAL TRACT IRRITATION [None]
  - ASTHENIA [None]
  - HEADACHE [None]
  - ABDOMINAL PAIN UPPER [None]
  - DYSPEPSIA [None]
  - BODY TEMPERATURE DECREASED [None]
  - MALAISE [None]
  - SOMNOLENCE [None]
  - DRUG EFFECT DECREASED [None]
